FAERS Safety Report 6748947-5 (Version None)
Quarter: 2010Q2

REPORT INFORMATION
  Report Type: 
  Country: None (occurrence: None)
  Receive Date: 20100601
  Receipt Date: 20100520
  Transmission Date: 20101027
  Serious: Yes (Hospitalization, Other)
  Sender: FDA-Public Use
  Company Number: NO-BAYER-201022768GPV

PATIENT
  Age: 18 Year
  Sex: Female

DRUGS (2)
  1. MIRENA [Suspect]
     Indication: CONTRACEPTION
     Route: 015
     Dates: start: 20080225, end: 20090318
  2. MIRENA [Suspect]
     Route: 015
     Dates: start: 20080204, end: 20090512

REACTIONS (7)
  - CERVICAL DYSPLASIA [None]
  - DEVICE DISLOCATION [None]
  - DISCOMFORT [None]
  - INFECTION [None]
  - INTRA-UTERINE CONTRACEPTIVE DEVICE INSERTION [None]
  - PAIN [None]
  - UTERINE HAEMORRHAGE [None]
